FAERS Safety Report 10147177 (Version 1)
Quarter: 2014Q2

REPORT INFORMATION
  Report Type: Spontaneous
  Country: IT (occurrence: IT)
  Receive Date: 20140501
  Receipt Date: 20140501
  Transmission Date: 20141212
  Serious: Yes (Life-Threatening)
  Sender: FDA-Public Use
  Company Number: PHHY2014IT050129

PATIENT
  Age: 53 Year
  Sex: Female

DRUGS (4)
  1. EPIRUBICIN [Suspect]
     Indication: BREAST CANCER
     Dosage: 90 MG, ONCE/SINGLE
     Route: 042
     Dates: start: 20140401, end: 20140401
  2. ENDOXAN [Suspect]
     Indication: BREAST CANCER
     Dosage: 900 MG, ONCE/SINGLE
     Route: 042
     Dates: start: 20140401, end: 20140401
  3. ALUMINIUM CHLORIDE [Concomitant]
     Dosage: 50 MG, UNK
     Route: 048
  4. SOLDESAM [Concomitant]
     Dosage: 32 DRP, UNK
     Route: 048

REACTIONS (2)
  - Epilepsy [Recovered/Resolved]
  - Loss of consciousness [Recovered/Resolved]
